FAERS Safety Report 5310245-4 (Version None)
Quarter: 2007Q2

REPORT INFORMATION
  Report Type: 
  Country: None (occurrence: None)
  Receive Date: 20070427
  Receipt Date: 20070425
  Transmission Date: 20071010
  Serious: Yes (Hospitalization)
  Sender: FDA-Public Use
  Company Number: US-BRISTOL-MYERS SQUIBB COMPANY-13712286

PATIENT
  Age: 55 Year
  Sex: Female

DRUGS (3)
  1. DASATINIB [Suspect]
     Indication: BREAST CANCER
     Route: 048
     Dates: start: 20070310, end: 20070312
  2. BENACEN [Concomitant]
     Dates: start: 20070101
  3. HYDROCHLOROTHIAZIDE [Concomitant]
     Dates: start: 20070101

REACTIONS (7)
  - BLOOD CHLORIDE DECREASED [None]
  - BLOOD SODIUM DECREASED [None]
  - DEHYDRATION [None]
  - DIARRHOEA [None]
  - NAUSEA [None]
  - VOMITING [None]
  - WHITE BLOOD CELL COUNT INCREASED [None]
